FAERS Safety Report 21027218 (Version 1)
Quarter: 2022Q2

REPORT INFORMATION
  Report Type: Spontaneous
  Country: HR (occurrence: HR)
  Receive Date: 20220630
  Receipt Date: 20220630
  Transmission Date: 20220721
  Serious: Yes (Other)
  Sender: FDA-Public Use
  Company Number: None

PATIENT

DRUGS (5)
  1. LAMICTAL [Suspect]
     Active Substance: LAMOTRIGINE
     Indication: Product used for unknown indication
     Dosage: 28 DF, QD (DF=1 TABLET)
     Route: 048
     Dates: start: 20220531, end: 20220531
  2. IBUPROFEN [Suspect]
     Active Substance: IBUPROFEN
     Indication: Product used for unknown indication
     Dosage: 4 G, QD (10TBL.X400MG)
     Route: 048
     Dates: start: 20220531, end: 20220531
  3. ACETAMINOPHEN [Suspect]
     Active Substance: ACETAMINOPHEN
     Indication: Product used for unknown indication
     Dosage: 14 G, QD (28TBL.X500MG)
     Route: 065
     Dates: start: 20220531, end: 20220531
  4. ANDOL [Suspect]
     Active Substance: ASPIRIN
     Indication: Product used for unknown indication
     Dosage: 1 G, QD (10TBL.X100MG)
     Route: 048
     Dates: start: 20220531, end: 20220531
  5. QUETIAPINE [Suspect]
     Active Substance: QUETIAPINE
     Indication: Product used for unknown indication
     Dosage: 90 DF, QD (DF = 1 TABLET)
     Route: 048
     Dates: start: 20220531, end: 20220531

REACTIONS (4)
  - Somnolence [Unknown]
  - Intentional overdose [Unknown]
  - Depressed mood [Unknown]
  - Suicide attempt [Unknown]

NARRATIVE: CASE EVENT DATE: 20220531
